FAERS Safety Report 4678371-0 (Version None)
Quarter: 2005Q2

REPORT INFORMATION
  Report Type: 
  Country: None (occurrence: None)
  Receive Date: 20050531
  Receipt Date: 20050531
  Transmission Date: 20051028
  Serious: Yes (Hospitalization)
  Sender: FDA-Public Use
  Company Number: None

PATIENT
  Age: 25 Year
  Sex: Female

DRUGS (1)
  1. FERRLECIT [Suspect]
     Indication: IRON DEFICIENCY
     Dosage: 250 MG ONCE INTRAVENOU
     Route: 042
     Dates: start: 20050412, end: 20050412

REACTIONS (12)
  - ASTHENIA [None]
  - BURNING SENSATION [None]
  - CHEST PAIN [None]
  - DYSPNOEA [None]
  - FAECAL INCONTINENCE [None]
  - HYPERHIDROSIS [None]
  - INFUSION RELATED REACTION [None]
  - INJECTION SITE IRRITATION [None]
  - INJECTION SITE PAIN [None]
  - PAIN IN EXTREMITY [None]
  - SOMNOLENCE [None]
  - URINARY INCONTINENCE [None]
